FAERS Safety Report 19693774 (Version 1)
Quarter: 2021Q3

REPORT INFORMATION
  Report Type: Spontaneous
  Country: US (occurrence: US)
  Receive Date: 20210813
  Receipt Date: 20210813
  Transmission Date: 20211014
  Serious: No
  Sender: FDA-Public Use
  Company Number: US-DRREDDYS-SPO/USA/21/0138798

PATIENT
  Sex: Female

DRUGS (1)
  1. IBANDRONATE SODIUM TABLETS 150 MG [Suspect]
     Active Substance: IBANDRONATE SODIUM
     Indication: BONE PAIN
     Dates: start: 2021, end: 20210601

REACTIONS (3)
  - Diarrhoea [Unknown]
  - Illness [Unknown]
  - Abdominal discomfort [Unknown]
